FAERS Safety Report 5248244-3 (Version None)
Quarter: 2007Q1

REPORT INFORMATION
  Report Type: 
  Country: None (occurrence: None)
  Receive Date: 20070227
  Receipt Date: 20060912
  Transmission Date: 20070707
  Serious: No
  Sender: FDA-Public Use
  Company Number: US-BRISTOL-MYERS SQUIBB COMPANY-13506878

PATIENT
  Age: 64 Year
  Sex: Female
  Weight: 99 kg

DRUGS (3)
  1. METFORMIN HCL [Suspect]
     Dates: start: 20060601
  2. BYETTA [Suspect]
     Dosage: BEYETTA INJECTION 5 MCG SC BID STARTED 13-DEC-2006.
     Route: 058
     Dates: start: 20060801
  3. ACTOS [Suspect]
     Dosage: ACTOS 30 MG QD (UNKNOWN START DATE) REDUCED TO 15 MG IN JUNE-2006.
     Dates: start: 20060601

REACTIONS (7)
  - ASTHENIA [None]
  - BLOOD GLUCOSE DECREASED [None]
  - DECREASED APPETITE [None]
  - DRUG INEFFECTIVE FOR UNAPPROVED INDICATION [None]
  - NAUSEA [None]
  - VOMITING [None]
  - WEIGHT DECREASED [None]
